FAERS Safety Report 16979194 (Version 1)
Quarter: 2019Q4

REPORT INFORMATION
  Report Type: Spontaneous
  Country: US (occurrence: US)
  Receive Date: 20191031
  Receipt Date: 20191031
  Transmission Date: 20200122
  Serious: No
  Sender: FDA-Public Use
  Company Number: US-PFIZER INC-2019467475

PATIENT
  Age: 49 Year
  Sex: Female
  Weight: 65.77 kg

DRUGS (2)
  1. GABAPENTIN. [Suspect]
     Active Substance: GABAPENTIN
     Indication: NEUROLOGICAL SYMPTOM
     Dosage: 600 MG, 1X/DAY (300 MG, 2 CAPSULES (600 MG), AT NIGHT)
     Dates: start: 2019
  2. GABAPENTIN. [Suspect]
     Active Substance: GABAPENTIN
     Indication: TREMOR
     Dosage: 300 MG, UNK

REACTIONS (3)
  - Off label use [Unknown]
  - Tinnitus [Unknown]
  - Product use in unapproved indication [Unknown]
